FAERS Safety Report 5003630-1 (Version None)
Quarter: 2006Q2

REPORT INFORMATION
  Report Type: 
  Country: None (occurrence: None)
  Receive Date: 20060516
  Receipt Date: 20060201
  Transmission Date: 20061013
  Serious: Yes (Hospitalization, Disabling)
  Sender: FDA-Public Use
  Company Number: US-MERCK-0602USA00588

PATIENT
  Age: 32 Year
  Sex: Male
  Weight: 102 kg

DRUGS (1)
  1. VIOXX [Suspect]
     Indication: BACK PAIN
     Route: 048
     Dates: start: 19990101, end: 20040901

REACTIONS (9)
  - ANXIETY [None]
  - BACK INJURY [None]
  - CARDIAC DISORDER [None]
  - CHEST PAIN [None]
  - HEADACHE [None]
  - INJURY [None]
  - NERVOUSNESS [None]
  - PALPITATIONS [None]
  - STRESS [None]
